FAERS Safety Report 20471724 (Version 1)
Quarter: 2022Q1

REPORT INFORMATION
  Report Type: Spontaneous
  Country: US (occurrence: US)
  Receive Date: 20220214
  Receipt Date: 20220214
  Transmission Date: 20220424
  Serious: No
  Sender: FDA-Public Use
  Company Number: US-INSUD PHARMA-2202US00476

PATIENT

DRUGS (1)
  1. SLYND [Suspect]
     Active Substance: DROSPIRENONE
     Indication: Oral contraception
     Dosage: DAILY
     Route: 048
     Dates: start: 2021

REACTIONS (1)
  - Menstruation irregular [Not Recovered/Not Resolved]
